FAERS Safety Report 4861513-1 (Version None)
Quarter: 2005Q4

REPORT INFORMATION
  Report Type: 
  Country: None (occurrence: None)
  Receive Date: 20051129
  Receipt Date: 20050913
  Transmission Date: 20060501
  Serious: Yes (Hospitalization)
  Sender: FDA-Public Use
  Company Number: WAES 0509USA01747

PATIENT
  Age: 82 Year
  Sex: Female

DRUGS (2)
  1. FOSAMAX [Suspect]
     Indication: OSTEOPOROSIS
     Dosage: 70 MG/WKY/PO
     Route: 048
     Dates: start: 20040101
  2. CAL-CITRATE [Concomitant]

REACTIONS (4)
  - DIZZINESS [None]
  - OESOPHAGEAL DISORDER [None]
  - RASH GENERALISED [None]
  - STOMACH DISCOMFORT [None]
